FAERS Safety Report 11621651 (Version 1)
Quarter: 2015Q4

REPORT INFORMATION
  Report Type: Spontaneous
  Country: AR (occurrence: AR)
  Receive Date: 20151013
  Receipt Date: 20151013
  Transmission Date: 20160304
  Serious: Yes (Hospitalization, Other)
  Sender: FDA-Public Use
  Company Number: AR-AMGEN-ARGSP2015106423

PATIENT
  Age: 70 Year
  Sex: Female

DRUGS (1)
  1. ENBREL [Suspect]
     Active Substance: ETANERCEPT
     Indication: RHEUMATOID ARTHRITIS
     Dosage: 50 MG, WEEKLY
     Route: 065
     Dates: start: 20121010

REACTIONS (3)
  - Respiratory arrest [Not Recovered/Not Resolved]
  - Seizure [Not Recovered/Not Resolved]
  - Pulse absent [Not Recovered/Not Resolved]

NARRATIVE: CASE EVENT DATE: 20150918
